FAERS Safety Report 23244206 (Version 1)
Quarter: 2023Q4

REPORT INFORMATION
  Report Type: Spontaneous
  Country: US (occurrence: US)
  Receive Date: 20231130
  Receipt Date: 20231130
  Transmission Date: 20240109
  Serious: Yes (Other)
  Sender: FDA-Public Use
  Company Number: US-STRIDES ARCOLAB LIMITED-2023SP017078

PATIENT
  Age: 38 Year
  Sex: Female

DRUGS (3)
  1. PREDNISOLONE [Suspect]
     Active Substance: PREDNISOLONE
     Indication: Dyspnoea
     Dosage: 40 MILLIGRAM, BID
     Route: 065
     Dates: start: 2020
  2. HUMAN IMMUNOGLOBULIN G [Suspect]
     Active Substance: HUMAN IMMUNOGLOBULIN G
     Indication: COVID-19
     Dosage: 1.4 GRAM PER KILOGRAM, EVERY 2 WEEKS
     Route: 042
     Dates: start: 20211117
  3. PFIZER-BIONTECH COVID-19 VACCINE [Concomitant]
     Active Substance: TOZINAMERAN
     Indication: COVID-19 immunisation
     Dosage: UNK (2 DOSES)
     Route: 065

REACTIONS (5)
  - Mycobacterium fortuitum infection [Unknown]
  - Drug ineffective [Unknown]
  - Condition aggravated [Unknown]
  - Measles [Unknown]
  - Hepatitis A [Unknown]

NARRATIVE: CASE EVENT DATE: 20200101
